FAERS Safety Report 7321260-3 (Version None)
Quarter: 2011Q1

REPORT INFORMATION
  Report Type: 
  Country: None (occurrence: None)
  Receive Date: 20110223
  Receipt Date: 20110223
  Transmission Date: 20110831
  Serious: Yes (Hospitalization)
  Sender: FDA-Public Use
  Company Number: None

PATIENT
  Sex: Female
  Weight: 97.7 kg

DRUGS (2)
  1. TAXOL [Suspect]
     Dosage: 1162 MG
     Dates: end: 20110126
  2. CARBOPLATIN [Suspect]
     Dosage: 2422 MG
     Dates: end: 20110126

REACTIONS (3)
  - DYSPNOEA [None]
  - PULMONARY EMBOLISM [None]
  - ANAEMIA [None]
